FAERS Safety Report 10305399 (Version 1)
Quarter: 2014Q3

REPORT INFORMATION
  Report Type: Spontaneous
  Country: US (occurrence: None)
  Receive Date: 20140711
  Receipt Date: 20140711
  Transmission Date: 20150326
  Serious: Yes (Hospitalization, Disabling)
  Sender: FDA-Public Use
  Company Number: None

PATIENT
  Age: 47 Year
  Sex: Male
  Weight: 97.52 kg

DRUGS (1)
  1. LARIAM [Suspect]
     Active Substance: MEFLOQUINE HYDROCHLORIDE
     Indication: MALARIA
     Dosage: ONCE WEEKLY, WEEKLY, TAKEN BY MOUTH
     Route: 048
     Dates: start: 20070602, end: 20070915

REACTIONS (9)
  - Muscle twitching [None]
  - Fall [None]
  - Anxiety [None]
  - Depression [None]
  - Circulatory collapse [None]
  - Polyneuropathy [None]
  - Paraesthesia [None]
  - Vertigo [None]
  - Abasia [None]

NARRATIVE: CASE EVENT DATE: 20070704
